FAERS Safety Report 7419542-X (Version None)
Quarter: 2011Q2

REPORT INFORMATION
  Report Type: 
  Country: None (occurrence: None)
  Receive Date: 20110412
  Receipt Date: 20110412
  Transmission Date: 20111010
  Serious: Yes (Death)
  Sender: FDA-Public Use
  Company Number: None

PATIENT
  Age: 52 Year
  Sex: Male
  Weight: 54.5 kg

DRUGS (8)
  1. HYDROCHLOROTHIAZIDE [Concomitant]
  2. NIFEDIPINE [Concomitant]
  3. FUROSEMIDE [Concomitant]
  4. KALETRA [Suspect]
     Indication: HIV INFECTION
     Dosage: 400/100 MG BID ORAL
     Route: 048
     Dates: start: 20110314, end: 20110323
  5. COTRIM [Concomitant]
  6. MICONAZOLE [Concomitant]
  7. TRUVADA [Suspect]
     Indication: HIV INFECTION
     Dosage: 200/300 MG QD ORAL
     Route: 048
     Dates: start: 20110314, end: 20110323
  8. METOCLOPRAMIDE [Concomitant]

REACTIONS (2)
  - RENAL FAILURE [None]
  - PLEURAL EFFUSION [None]
